FAERS Safety Report 5125148-8 (Version None)
Quarter: 2006Q4

REPORT INFORMATION
  Report Type: 
  Country: None (occurrence: None)
  Receive Date: 20061006
  Receipt Date: 20060921
  Transmission Date: 20070319
  Serious: Yes (Death, Other)
  Sender: FDA-Public Use
  Company Number: 2005BI020805

PATIENT
  Sex: Male

DRUGS (3)
  1. ZEVALIN [Suspect]
     Indication: NON-HODGKIN'S LYMPHOMA
     Dosage: 1X; IV
     Route: 042
  2. RITUXIMAB [Concomitant]
  3. CHEMOTHERAPY [Concomitant]

REACTIONS (7)
  - CONDITION AGGRAVATED [None]
  - DRUG HYPERSENSITIVITY [None]
  - LINEAR IGA DISEASE [None]
  - ORAL SOFT TISSUE DISORDER [None]
  - PEMPHIGOID [None]
  - STEVENS-JOHNSON SYNDROME [None]
  - SUDDEN DEATH [None]
